FAERS Safety Report 24357648 (Version 1)
Quarter: 2024Q3

REPORT INFORMATION
  Report Type: Spontaneous
  Country: GB (occurrence: GB)
  Receive Date: 20240924
  Receipt Date: 20240924
  Transmission Date: 20241016
  Serious: Yes (Other)
  Sender: TEVA
  Company Number: None

PATIENT
  Sex: Male

DRUGS (4)
  1. ATORVASTATIN [Suspect]
     Active Substance: ATORVASTATIN
     Indication: Blood cholesterol increased
     Dosage: 20MG DAILY
     Route: 065
     Dates: start: 2024, end: 20240801
  2. EMTRICITABINE\TENOFOVIR [Concomitant]
     Active Substance: EMTRICITABINE\TENOFOVIR
  3. ACYCLOVIR [Concomitant]
     Active Substance: ACYCLOVIR
  4. ISENTRESS [Concomitant]
     Active Substance: RALTEGRAVIR POTASSIUM

REACTIONS (14)
  - Fatigue [Recovering/Resolving]
  - Back pain [Recovering/Resolving]
  - Diarrhoea [Unknown]
  - Swelling face [Recovering/Resolving]
  - Pallor [Unknown]
  - Rash [Recovering/Resolving]
  - Decreased appetite [Unknown]
  - Abdominal distension [Unknown]
  - Eye pain [Not Recovered/Not Resolved]
  - Swollen tongue [Recovering/Resolving]
  - Liver disorder [Unknown]
  - Abdominal pain upper [Recovered/Resolved]
  - Brain fog [Unknown]
  - Vision blurred [Recovering/Resolving]

NARRATIVE: CASE EVENT DATE: 20240701
